FAERS Safety Report 8438036-6 (Version None)
Quarter: 2012Q2

REPORT INFORMATION
  Report Type: 
  Country: None (occurrence: None)
  Receive Date: 20120614
  Receipt Date: 20120608
  Transmission Date: 20120825
  Serious: Yes (Hospitalization)
  Sender: FDA-Public Use
  Company Number: IT-B.I. PHARMACEUTICALS,INC./RIDGEFIELD-2012-IT-00173IT

PATIENT
  Sex: Female

DRUGS (8)
  1. FLUTICASONE PROPIONATE [Suspect]
     Indication: ASTHMA
     Dosage: 550 MCG
     Route: 055
     Dates: start: 20120217, end: 20120312
  2. SIMVASTATIN [Concomitant]
     Route: 048
  3. ALLOPURINOL [Concomitant]
     Route: 048
  4. UNIPRIL [Concomitant]
     Dosage: 2.5 MG
     Route: 048
  5. DILTIAZEM HCL [Concomitant]
     Dosage: 180 MG
     Route: 048
  6. PLAVIX [Concomitant]
     Dosage: 75 MG
     Route: 048
  7. SPIRIVA [Suspect]
     Indication: CHRONIC OBSTRUCTIVE PULMONARY DISEASE
     Dosage: 18 MCG
     Route: 055
     Dates: start: 20120217, end: 20120312
  8. LASIX [Concomitant]
     Dosage: 25 MG
     Route: 048

REACTIONS (6)
  - DRY MOUTH [None]
  - DROP ATTACKS [None]
  - ERYTHEMA [None]
  - DYSPHAGIA [None]
  - PYREXIA [None]
  - PRURITUS [None]
